FAERS Safety Report 4437708-8 (Version None)
Quarter: 2004Q3

REPORT INFORMATION
  Report Type: 
  Country: None (occurrence: None)
  Receive Date: 20040831
  Receipt Date: 20030709
  Transmission Date: 20050211
  Serious: No
  Sender: FDA-Public Use
  Company Number: US-GLAXOSMITHKLINE-A0416647A

PATIENT
  Age: 29 Year
  Sex: Female

DRUGS (9)
  1. ZOVIRAX [Suspect]
     Route: 048
  2. WARFARIN SODIUM [Suspect]
     Indication: ILL-DEFINED DISORDER
     Route: 065
  3. PREVACID [Concomitant]
  4. PAXIL [Concomitant]
  5. NEURONTIN [Concomitant]
  6. DIFLUCAN [Concomitant]
  7. NORTRIPTYLINE HCL [Concomitant]
  8. CELEBREX [Concomitant]
  9. INHALERS [Concomitant]
     Route: 055

REACTIONS (2)
  - DRUG INTERACTION [None]
  - INTERNATIONAL NORMALISED RATIO INCREASED [None]
